FAERS Safety Report 13814043 (Version 1)
Quarter: 2017Q3

REPORT INFORMATION
  Report Type: Spontaneous
  Country: FR (occurrence: FR)
  Receive Date: 20170731
  Receipt Date: 20170731
  Transmission Date: 20171127
  Serious: Yes (Hospitalization, Other)
  Sender: FDA-Public Use
  Company Number: FR-ACCORD-056530

PATIENT
  Age: 52 Year
  Sex: Male

DRUGS (4)
  1. HYDROXYZINE RENAUDIN [Suspect]
     Active Substance: HYDROXYZINE HYDROCHLORIDE
     Indication: PRURITUS
     Dosage: 30 MG ONCE IN ONE SINGE INTAKE
     Route: 042
     Dates: start: 20170704
  2. FORTIMEL EXTRA [Suspect]
     Active Substance: DIETARY SUPPLEMENT
     Indication: PRODUCT USED FOR UNKNOWN INDICATION
     Dosage: TWICE DAILY
     Dates: start: 20170701
  3. DEXAMETHASONE. [Concomitant]
     Active Substance: DEXAMETHASONE
  4. CISPLATIN ACCORD [Suspect]
     Active Substance: CISPLATIN
     Indication: TONSIL CANCER
     Dosage: 196 MG PER CYCLE, 1ST CYCLE ON 13-JUN-2017
     Route: 042
     Dates: start: 20170704

REACTIONS (10)
  - Malaise [None]
  - Withdrawal syndrome [None]
  - Pruritus [Recovered/Resolved]
  - Hypotension [Recovered/Resolved]
  - Tremor [Unknown]
  - Weight decreased [None]
  - Urticaria [Recovered/Resolved]
  - Chills [Unknown]
  - Dry skin [Unknown]
  - Ageusia [None]

NARRATIVE: CASE EVENT DATE: 20170704
